FAERS Safety Report 26100060 (Version 1)
Quarter: 2025Q4

REPORT INFORMATION
  Report Type: Spontaneous
  Country: GB (occurrence: GB)
  Receive Date: 20251128
  Receipt Date: 20251128
  Transmission Date: 20260118
  Serious: Yes (Other)
  Sender: HIKMA
  Company Number: None

PATIENT
  Age: 68 Year
  Sex: Female
  Weight: 66 kg

DRUGS (4)
  1. CIPROFLOXACIN [Suspect]
     Active Substance: CIPROFLOXACIN
     Indication: Diverticulitis
     Dosage: UNKNOWN
     Route: 042
  2. CIPROFLOXACIN [Suspect]
     Active Substance: CIPROFLOXACIN
     Dosage: UNKNOWN
     Route: 042
     Dates: start: 20251118, end: 20251120
  3. FLUOCINOLONE [Suspect]
     Active Substance: FLUOCINOLONE
     Indication: Diverticulitis
     Dosage: UNKNOWN
     Route: 042
  4. FLUOCINOLONE [Suspect]
     Active Substance: FLUOCINOLONE
     Dosage: UNKNOWN
     Route: 042
     Dates: start: 20251118, end: 20251120

REACTIONS (6)
  - Headache [Recovering/Resolving]
  - Confusional state [Recovering/Resolving]
  - Nausea [Recovered/Resolved]
  - Eye pain [Recovering/Resolving]
  - Disturbance in attention [Unknown]
  - Rash [Unknown]

NARRATIVE: CASE EVENT DATE: 20251119
